FAERS Safety Report 7334553-0 (Version None)
Quarter: 2011Q1

REPORT INFORMATION
  Report Type: 
  Country: None (occurrence: None)
  Receive Date: 20110224
  Receipt Date: 20091104
  Transmission Date: 20110831
  Serious: Yes (Hospitalization, Disabling)
  Sender: FDA-Public Use
  Company Number: 027862

PATIENT
  Age: 22 Year
  Sex: Female

DRUGS (6)
  1. ZONISAMIDE [Suspect]
     Indication: CONVULSION
     Dosage: (200 MG), (400 MG), (GRADUAL REDUCTION AND DISCONTINUATION)
     Dates: start: 20070101, end: 20070101
  2. ZONISAMIDE [Suspect]
     Indication: CONVULSION
     Dosage: (200 MG), (400 MG), (GRADUAL REDUCTION AND DISCONTINUATION)
     Dates: start: 20070101
  3. OXCARBAZEPINE [Suspect]
     Indication: CONVULSION
     Dosage: (1650 MG), (1200 MG)
     Dates: start: 20050401
  4. LEVETIRACETAM [Suspect]
     Indication: CONVULSION
     Dosage: (2000 MG), (3000 MG), (2750 MG)
     Dates: start: 20050401
  5. LEVETIRACETAM [Suspect]
     Indication: CONVULSION
     Dosage: (2000 MG), (3000 MG), (2750 MG)
     Dates: start: 20050201, end: 20050401
  6. LAMOTRIGINE [Suspect]
     Indication: CONVULSION
     Dosage: (400 MG), (475 MG), (600 MG)
     Dates: start: 20040101

REACTIONS (9)
  - NO THERAPEUTIC RESPONSE [None]
  - DEPRESSION [None]
  - COGNITIVE DISORDER [None]
  - CONDITION AGGRAVATED [None]
  - PARTIAL SEIZURES WITH SECONDARY GENERALISATION [None]
  - AUTOMATISM EPILEPTIC [None]
  - CONVULSION [None]
  - PSYCHOMOTOR RETARDATION [None]
  - DYSARTHRIA [None]
